FAERS Safety Report 18899679 (Version 1)
Quarter: 2021Q1

REPORT INFORMATION
  Report Type: Spontaneous
  Country: IN (occurrence: IN)
  Receive Date: 20210216
  Receipt Date: 20210216
  Transmission Date: 20210420
  Serious: Yes (Hospitalization, Other)
  Sender: FDA-Public Use
  Company Number: IN-SUN PHARMACEUTICAL INDUSTRIES LTD-2021R1-278605

PATIENT
  Age: 8 Year
  Sex: Male
  Weight: 21 kg

DRUGS (2)
  1. FUROSEMIDE. [Suspect]
     Active Substance: FUROSEMIDE
     Indication: POSTOPERATIVE CARE
     Dosage: 20 MILLIGRAM, OD
     Route: 065
  2. CAPTOPRIL. [Suspect]
     Active Substance: CAPTOPRIL
     Indication: POSTOPERATIVE CARE
     Dosage: 12.5 MILLIGRAM 8 HOURLY
     Route: 065

REACTIONS (1)
  - Hyperkalaemia [Recovered/Resolved]
